FAERS Safety Report 6982328-4 (Version None)
Quarter: 2010Q3

REPORT INFORMATION
  Report Type: 
  Country: None (occurrence: None)
  Receive Date: 20100914
  Receipt Date: 20091209
  Transmission Date: 20110219
  Serious: No
  Sender: FDA-Public Use
  Company Number: US-PFIZER INC-2009308963

PATIENT
  Age: 55 Year
  Sex: Female

DRUGS (2)
  1. LYRICA [Suspect]
     Dosage: 75, TWICE DAILY
  2. LEXAPRO [Suspect]

REACTIONS (1)
  - VISUAL IMPAIRMENT [None]
